FAERS Safety Report 17950554 (Version 1)
Quarter: 2020Q2

REPORT INFORMATION
  Report Type: Report from Study
  Country: CH (occurrence: CH)
  Receive Date: 20200626
  Receipt Date: 20200626
  Transmission Date: 20200714
  Serious: Yes (Hospitalization, Other)
  Sender: FDA-Public Use
  Company Number: CH-ROCHE-2614682

PATIENT
  Age: 59 Year

DRUGS (2)
  1. BLINDED IBRUTINIB [Suspect]
     Active Substance: IBRUTINIB
     Indication: B-CELL LYMPHOMA
     Dosage: ON 08/JUN/2020 LAST ADMINISTRATION OF SAE
     Route: 048
     Dates: start: 20200408
  2. RITUXIMAB. [Suspect]
     Active Substance: RITUXIMAB
     Indication: B-CELL LYMPHOMA
     Dosage: ON 15/MAY/2020, LAST ADMINISTRATION OF RITUXIMAB BEFORE SAE
     Route: 042
     Dates: start: 20200424

REACTIONS (2)
  - Chylothorax [Recovered/Resolved]
  - Diffuse large B-cell lymphoma [Recovered/Resolved with Sequelae]

NARRATIVE: CASE EVENT DATE: 20200519
